FAERS Safety Report 5004113-5 (Version None)
Quarter: 2006Q2

REPORT INFORMATION
  Report Type: 
  Country: None (occurrence: None)
  Receive Date: 20060511
  Receipt Date: 20060502
  Transmission Date: 20061013
  Serious: Yes (Other)
  Sender: FDA-Public Use
  Company Number: 2006058657

PATIENT
  Age: 76 Year
  Sex: Male

DRUGS (5)
  1. CADUET [Suspect]
     Indication: CORONARY ARTERY DISEASE
     Dosage: 5/10 MG (1 IN 1 D)
     Dates: start: 20050823, end: 20051001
  2. CADUET [Suspect]
     Indication: HYPERLIPIDAEMIA
     Dosage: 5/10 MG (1 IN 1 D)
     Dates: start: 20050823, end: 20051001
  3. CADUET [Suspect]
     Indication: HYPERTENSION
     Dosage: 5/10 MG (1 IN 1 D)
     Dates: start: 20050823, end: 20051001
  4. ATENOLOL [Concomitant]
  5. ACETYLSALICYLIC ACID SRT [Concomitant]

REACTIONS (1)
  - DEAFNESS UNILATERAL [None]
